FAERS Safety Report 24927200 (Version 1)
Quarter: 2025Q1

REPORT INFORMATION
  Report Type: Spontaneous
  Country: US (occurrence: US)
  Receive Date: 20250205
  Receipt Date: 20250205
  Transmission Date: 20250408
  Serious: No
  Sender: Harrow Health
  Company Number: US-IMP-2025000094

PATIENT
  Sex: Female

DRUGS (3)
  1. VEVYE [Suspect]
     Active Substance: CYCLOSPORINE
     Indication: Product used for unknown indication
     Route: 047
  2. UNSPECIFIED INGREDIENT [Suspect]
     Active Substance: UNSPECIFIED INGREDIENT
     Indication: Product used for unknown indication
     Route: 047
  3. PREDNISOLONE [Concomitant]
     Active Substance: PREDNISOLONE
     Indication: Product used for unknown indication
     Route: 047

REACTIONS (5)
  - Photophobia [Not Recovered/Not Resolved]
  - Discomfort [Not Recovered/Not Resolved]
  - Dry eye [Not Recovered/Not Resolved]
  - Condition aggravated [Not Recovered/Not Resolved]
  - Eye pain [Not Recovered/Not Resolved]
